FAERS Safety Report 23947283 (Version 1)
Quarter: 2024Q2

REPORT INFORMATION
  Report Type: Spontaneous
  Country: PL (occurrence: PL)
  Receive Date: 20240606
  Receipt Date: 20240606
  Transmission Date: 20240716
  Serious: Yes (Hospitalization, Other)
  Sender: FDA-Public Use
  Company Number: PL-ABBVIE-5783867

PATIENT
  Age: 80 Year
  Sex: Female

DRUGS (6)
  1. VENETOCLAX [Suspect]
     Active Substance: VENETOCLAX
     Indication: Acute myeloid leukaemia
     Route: 048
     Dates: start: 20230911
  2. VENETOCLAX [Suspect]
     Active Substance: VENETOCLAX
     Indication: Acute myeloid leukaemia
     Route: 048
     Dates: start: 202405
  3. AZACITIDINE [Concomitant]
     Active Substance: AZACITIDINE
     Indication: Acute myeloid leukaemia
     Route: 065
     Dates: start: 20230911
  4. VORICONAZOLE [Concomitant]
     Active Substance: VORICONAZOLE
     Indication: Inflammation
     Dates: start: 202309
  5. CASPOFUNGIN [Concomitant]
     Active Substance: CASPOFUNGIN
     Indication: Antifungal treatment
     Dates: start: 2023
  6. ALLOPURINOL [Concomitant]
     Active Substance: ALLOPURINOL
     Indication: Product used for unknown indication

REACTIONS (11)
  - Pneumonia escherichia [Recovering/Resolving]
  - Thrombocytopenia [Recovered/Resolved]
  - General physical health deterioration [Recovering/Resolving]
  - Inflammation [Recovering/Resolving]
  - Neutropenia [Recovered/Resolved]
  - Cardiac failure [Recovering/Resolving]
  - Neutrophil count increased [Recovered/Resolved]
  - Urinary tract infection [Unknown]
  - C-reactive protein increased [Recovered/Resolved]
  - Platelet count increased [Unknown]
  - Fungal infection [Recovering/Resolving]

NARRATIVE: CASE EVENT DATE: 20230101
